FAERS Safety Report 6996646-7 (Version None)
Quarter: 2010Q3

REPORT INFORMATION
  Report Type: 
  Country: None (occurrence: None)
  Receive Date: 20100918
  Receipt Date: 20090511
  Transmission Date: 20110219
  Serious: No
  Sender: FDA-Public Use
  Company Number: US-WYE-H09316509

PATIENT
  Sex: Female

DRUGS (4)
  1. EFFEXOR XR [Suspect]
     Dosage: 75 MG TO 150 MG DAILY
     Route: 048
  2. EFFEXOR XR [Suspect]
     Route: 048
     Dates: start: 20060101, end: 20090101
  3. EFFEXOR XR [Suspect]
     Route: 048
     Dates: start: 20090101, end: 20090101
  4. EFFEXOR XR [Suspect]
     Route: 048
     Dates: start: 20090101, end: 20090301

REACTIONS (6)
  - DISCOMFORT [None]
  - DIZZINESS [None]
  - DRUG WITHDRAWAL SYNDROME [None]
  - FEELING ABNORMAL [None]
  - NAUSEA [None]
  - PARAESTHESIA [None]
